FAERS Safety Report 21379717 (Version 2)
Quarter: 2023Q1

REPORT INFORMATION
  Report Type: Report from Study
  Country: FR (occurrence: FR)
  Receive Date: 20220927
  Receipt Date: 20230216
  Transmission Date: 20230417
  Serious: Yes (Hospitalization)
  Sender: FDA-Public Use
  Company Number: FR-NOVARTISPH-NVSC2022FR075459

PATIENT
  Age: 42 Year
  Sex: Male
  Weight: 119 kg

DRUGS (7)
  1. SECUKINUMAB [Suspect]
     Active Substance: SECUKINUMAB
     Indication: Hidradenitis
     Dosage: UNK
     Route: 058
     Dates: start: 20211125
  2. SECUKINUMAB [Suspect]
     Active Substance: SECUKINUMAB
     Indication: Hidradenitis
     Dosage: 300 MG, Q2W
     Route: 058
     Dates: start: 20200922
  3. TRAMADOL [Concomitant]
     Active Substance: TRAMADOL
     Indication: Strangulated umbilical hernia
     Dosage: UNK
     Route: 065
     Dates: start: 20201006
  4. TRAMADOL [Concomitant]
     Active Substance: TRAMADOL
     Indication: Hidradenitis
     Dosage: UNK
     Route: 065
     Dates: start: 20210902
  5. ESOMEPRAZOLE [Concomitant]
     Active Substance: ESOMEPRAZOLE
     Indication: General physical condition
     Dosage: UNK
     Route: 065
     Dates: start: 20191105
  6. ACETAMINOPHEN [Concomitant]
     Active Substance: ACETAMINOPHEN
     Indication: Strangulated umbilical hernia
     Dosage: UNK
     Route: 065
     Dates: start: 20210902
  7. ACETAMINOPHEN [Concomitant]
     Active Substance: ACETAMINOPHEN
     Indication: Abdominal pain

REACTIONS (1)
  - Abscess limb [Recovered/Resolved]

NARRATIVE: CASE EVENT DATE: 20220328
